FAERS Safety Report 10038895 (Version 1)
Quarter: 2014Q1

REPORT INFORMATION
  Report Type: Spontaneous
  Country: US (occurrence: None)
  Receive Date: 20140306
  Receipt Date: 20140306
  Transmission Date: 20141002
  Serious: Yes (Other)
  Sender: FDA-Public Use
  Company Number: 163-21880-12080024

PATIENT
  Age: 74 Year
  Sex: Female

DRUGS (14)
  1. REVLIMID (LENALIDOMIDE) (CAPSULES) [Suspect]
     Indication: PLASMA CELL MYELOMA
     Dosage: 15 MG, 21 IN 28 D, PO?
     Route: 048
     Dates: start: 20120616
  2. PLAQUENIL (HYDROXYCHLOROQUINE PHOSPHATE) (TABLETS) [Suspect]
     Indication: PRODUCT USED FOR UNKNOWN INDICATION
  3. COREG (CARVEDILOL TABLETS) [Concomitant]
  4. CATAPRES (CLONIDINE) (TABLETS) [Concomitant]
  5. AMLODIPINE (AMLODIPINE) (UNKNOWN) [Concomitant]
  6. COUMADIN (WARFARIN SODIUM) (TABLETS) [Concomitant]
  7. ACYCLOVIR (ACICLOVIR) (CAPSULES) [Concomitant]
  8. ALLOPURINOL (ALLOPURINOL) (TABLETS) [Concomitant]
  9. FLAX SEE OIL (LINUM USITATISSIMUM SEED OIL) (CAPSULES) [Concomitant]
  10. MULTIVITAMINS (MULTIVITAMINS) (CAPSULES) [Concomitant]
  11. TYLENOL ARTHRITIS EXTENDED RELEASE (PARACETAMOL) (TABLETS) [Concomitant]
  12. VITAMIN C (ASCORBIC ACID) (UNKNOWN) [Concomitant]
  13. STOOL SOFTENER (DOCUSATE SODIUM) (UNKNOWN) [Concomitant]
  14. BULK FIBER (POLYCARBOPHIL CALCIUM) (UNKNOWN) [Concomitant]

REACTIONS (3)
  - Platelet count decreased [None]
  - Renal impairment [None]
  - Dizziness [None]
